FAERS Safety Report 7418101-2 (Version None)
Quarter: 2011Q2

REPORT INFORMATION
  Report Type: 
  Country: None (occurrence: None)
  Receive Date: 20110415
  Receipt Date: 20110404
  Transmission Date: 20111010
  Serious: Yes (Other)
  Sender: FDA-Public Use
  Company Number: US-ELI_LILLY_AND_COMPANY-US201104001936

PATIENT
  Sex: Female

DRUGS (2)
  1. FORTEO [Suspect]
     Indication: OSTEOPOROSIS
     Dosage: 20 UG, QD
     Dates: start: 20030101
  2. FORTEO [Suspect]
     Dosage: 20 UG, QD
     Dates: start: 20110101

REACTIONS (6)
  - VERTEBROPLASTY [None]
  - DRUG DOSE OMISSION [None]
  - FRACTURED SACRUM [None]
  - PATHOLOGICAL FRACTURE [None]
  - RASH [None]
  - FEMUR FRACTURE [None]
